FAERS Safety Report 19696004 (Version 3)
Quarter: 2021Q3

REPORT INFORMATION
  Report Type: Report from Study
  Country: US (occurrence: US)
  Receive Date: 20210813
  Receipt Date: 20210906
  Transmission Date: 20211014
  Serious: Yes (Other)
  Sender: FDA-Public Use
  Company Number: US-GLAXOSMITHKLINE-US2021AMR061819

PATIENT
  Age: 74 Year
  Sex: Female

DRUGS (1)
  1. BELANTAMAB MAFODOTIN. [Suspect]
     Active Substance: BELANTAMAB MAFODOTIN
     Indication: PRODUCT USED FOR UNKNOWN INDICATION
     Dosage: UNK
     Dates: start: 20210217, end: 20210325

REACTIONS (6)
  - Keratopathy [Recovered/Resolved]
  - Visual acuity reduced [Recovered/Resolved]
  - Plasma cell myeloma [Unknown]
  - Photophobia [Recovered/Resolved]
  - Posterior capsule opacification [Recovered/Resolved]
  - Night blindness [Recovered/Resolved]

NARRATIVE: CASE EVENT DATE: 20210311
